FAERS Safety Report 25029980 (Version 1)
Quarter: 2025Q1

REPORT INFORMATION
  Report Type: Spontaneous
  Country: DK (occurrence: DK)
  Receive Date: 20250303
  Receipt Date: 20250303
  Transmission Date: 20250409
  Serious: Yes (Life-Threatening, Hospitalization, Other)
  Sender: ROCHE
  Company Number: None

PATIENT
  Age: 63 Year
  Sex: Male

DRUGS (1)
  1. TECENTRIQ [Suspect]
     Active Substance: ATEZOLIZUMAB
     Indication: Small cell lung cancer
     Route: 042
     Dates: start: 20241018, end: 20241018

REACTIONS (6)
  - Colitis [Unknown]
  - Dehydration [Unknown]
  - Autoimmune colitis [Recovered/Resolved with Sequelae]
  - Autoimmune lung disease [Recovering/Resolving]
  - Diarrhoea [Unknown]
  - Food aversion [Unknown]

NARRATIVE: CASE EVENT DATE: 20241019
